FAERS Safety Report 18578133 (Version 1)
Quarter: 2020Q4

REPORT INFORMATION
  Report Type: Spontaneous
  Country: RU (occurrence: RU)
  Receive Date: 20201204
  Receipt Date: 20201204
  Transmission Date: 20210114
  Serious: Yes (Death, Other)
  Sender: FDA-Public Use
  Company Number: RU-JNJFOC-20201205176

PATIENT
  Age: 48 Year
  Sex: Male

DRUGS (3)
  1. RIVAROXABAN [Suspect]
     Active Substance: RIVAROXABAN
     Indication: PULMONARY EMBOLISM
     Dosage: 20 UNK
     Route: 048
  2. RIVAROXABAN [Suspect]
     Active Substance: RIVAROXABAN
     Indication: EMBOLISM VENOUS
     Dosage: 20 MG
     Route: 048
     Dates: start: 2015
  3. RIVAROXABAN [Suspect]
     Active Substance: RIVAROXABAN
     Dosage: 15 MG, BID
     Route: 048

REACTIONS (7)
  - Haemoglobin decreased [Unknown]
  - Cerebrovascular accident [Fatal]
  - Cerebrovascular accident [Unknown]
  - Atrial fibrillation [Unknown]
  - Intestinal haemorrhage [Unknown]
  - Depression [Unknown]
  - Adenocarcinoma of colon [Unknown]
